FAERS Safety Report 6444845-5 (Version None)
Quarter: 2009Q4

REPORT INFORMATION
  Report Type: 
  Country: None (occurrence: None)
  Receive Date: 20091118
  Receipt Date: 20091111
  Transmission Date: 20100525
  Serious: Yes (Hospitalization)
  Sender: FDA-Public Use
  Company Number: PHHO2007US17620

PATIENT
  Sex: Male
  Weight: 119 kg

DRUGS (8)
  1. RAD 666 RAD+TAB [Suspect]
     Indication: NON-SMALL CELL LUNG CANCER
     Dosage: 30 MG WEEKLY
     Route: 048
     Dates: start: 20071009, end: 20071225
  2. RAD 666 RAD+TAB [Suspect]
     Dosage: 30 MG WEEKLY
     Route: 048
     Dates: end: 20080102
  3. RAD 666 RAD+TAB [Suspect]
     Dosage: 30 MG WEEKLY
     Route: 048
     Dates: start: 20080108
  4. NEULASTA [Suspect]
  5. CARBOPLATIN [Concomitant]
     Indication: NON-SMALL CELL LUNG CANCER
     Route: 048
  6. PACLITAXEL [Concomitant]
     Route: 048
  7. CEFEPIME [Concomitant]
  8. ZITHROMAX [Concomitant]

REACTIONS (3)
  - CELLULITIS [None]
  - NEUTROPENIA [None]
  - PNEUMONIA [None]
